FAERS Safety Report 7577960-3 (Version None)
Quarter: 2011Q2

REPORT INFORMATION
  Report Type: 
  Country: None (occurrence: None)
  Receive Date: 20110628
  Receipt Date: 20110610
  Transmission Date: 20111010
  Serious: Yes (Hospitalization)
  Sender: FDA-Public Use
  Company Number: IT-ROCHE-784758

PATIENT
  Sex: Female

DRUGS (4)
  1. TORADOL [Suspect]
     Indication: ANALGESIC THERAPY
     Dosage: STRENGTH : 30 MG/ML
     Route: 042
     Dates: start: 20110512, end: 20110513
  2. AUGMENTIN '125' [Suspect]
     Indication: ANTIBIOTIC PROPHYLAXIS
     Route: 042
     Dates: start: 20110512, end: 20110515
  3. ENOXAPARIN SODIUM [Concomitant]
     Dates: start: 20110512, end: 20110514
  4. ACETAMINOPHEN [Suspect]
     Indication: ANALGESIC THERAPY
     Route: 042
     Dates: start: 20110512, end: 20110513

REACTIONS (3)
  - HAEMATURIA [None]
  - RENAL FAILURE ACUTE [None]
  - ANURIA [None]
